FAERS Safety Report 5042461-3 (Version None)
Quarter: 2006Q2

REPORT INFORMATION
  Report Type: 
  Country: None (occurrence: None)
  Receive Date: 20060627
  Receipt Date: 20060610
  Transmission Date: 20061013
  Serious: Yes (Other)
  Sender: FDA-Public Use
  Company Number: DE200606003968

PATIENT
  Sex: Female

DRUGS (3)
  1. FORTEO [Suspect]
     Dosage: SUBCUTANEOUS
     Route: 058
     Dates: start: 20060501
  2. FORTEO [Concomitant]
  3. ACTRAPID NOVOLET (INSULIN HUMAN) [Concomitant]

REACTIONS (1)
  - HYPERGLYCAEMIA [None]
